FAERS Safety Report 8138099-1 (Version None)
Quarter: 2012Q1

REPORT INFORMATION
  Report Type: 
  Country: None (occurrence: None)
  Receive Date: 20120215
  Receipt Date: 20120215
  Transmission Date: 20120608
  Serious: Yes (Other)
  Sender: FDA-Public Use
  Company Number: None

PATIENT
  Age: 38 Year
  Sex: Male
  Weight: 96.161 kg

DRUGS (2)
  1. SEROQUEL [Concomitant]
     Dosage: 25MG
     Route: 048
  2. SEROQUEL [Suspect]
     Indication: BIPOLAR DISORDER
     Dosage: 50.0 MG
     Route: 048
     Dates: start: 20120202, end: 20120213

REACTIONS (7)
  - INCREASED APPETITE [None]
  - CHEST DISCOMFORT [None]
  - CHEST PAIN [None]
  - MYOCARDIAL INFARCTION [None]
  - HEART RATE IRREGULAR [None]
  - INSOMNIA [None]
  - WEIGHT INCREASED [None]
